FAERS Safety Report 23963836 (Version 1)
Quarter: 2024Q2

REPORT INFORMATION
  Report Type: Spontaneous
  Country: US (occurrence: US)
  Receive Date: 20240611
  Receipt Date: 20240611
  Transmission Date: 20240716
  Serious: No
  Sender: FDA-Public Use
  Company Number: US-RIGEL Pharmaceuticals, INC-2023FOS000929

PATIENT
  Sex: Female
  Weight: 73.469 kg

DRUGS (10)
  1. TAVALISSE [Suspect]
     Active Substance: FOSTAMATINIB
     Indication: Immune thrombocytopenia
     Dosage: 100 MG, QOD
     Route: 048
     Dates: start: 20230126, end: 2023
  2. TAVALISSE [Suspect]
     Active Substance: FOSTAMATINIB
     Dosage: 150 MG, QOD
     Route: 048
     Dates: start: 2023
  3. CHLOROPHYLL [Concomitant]
     Indication: Product used for unknown indication
     Dosage: 3-0.6 MG, QD
     Route: 048
  4. VITAMIN D NOS [Concomitant]
     Active Substance: CHOLECALCIFEROL\ERGOCALCIFEROL
     Indication: Product used for unknown indication
     Dosage: 50 MICROGRAM, QD
     Route: 048
  5. VITAMINS [Concomitant]
     Active Substance: VITAMINS
     Indication: Product used for unknown indication
     Dosage: UNK UNK, QD
     Route: 048
  6. TRIPLE OMEGA 3 6 9 [Concomitant]
     Indication: Product used for unknown indication
     Dosage: UNK, QD
     Route: 048
  7. FLAX OIL [Concomitant]
     Indication: Product used for unknown indication
     Dosage: UNK, QD
  8. FISH OIL [Concomitant]
     Active Substance: FISH OIL
     Indication: Product used for unknown indication
     Dosage: UNK, QD
  9. BORAGE OIL [Concomitant]
     Active Substance: BORAGE OIL
     Indication: Product used for unknown indication
     Dosage: UNK, QD
  10. LEVOTHYROXINE [Concomitant]
     Active Substance: LEVOTHYROXINE\LEVOTHYROXINE SODIUM
     Indication: Product used for unknown indication
     Dosage: 25 MICROGRAM
     Dates: start: 2023

REACTIONS (6)
  - Thyroid disorder [Unknown]
  - Fall [Recovered/Resolved]
  - Wound [Recovered/Resolved]
  - Wound haemorrhage [Recovered/Resolved]
  - Pain [Not Recovered/Not Resolved]
  - Product use issue [Unknown]

NARRATIVE: CASE EVENT DATE: 20230101
